FAERS Safety Report 25605058 (Version 1)
Quarter: 2025Q3

REPORT INFORMATION
  Report Type: Report from Study
  Country: EU (occurrence: EU)
  Receive Date: 20250725
  Receipt Date: 20250725
  Transmission Date: 20251020
  Serious: Yes (Death, Hospitalization)
  Sender: ROCHE
  Company Number: EU-ROCHE-10000344368

PATIENT

DRUGS (3)
  1. RITUXIMAB [Suspect]
     Active Substance: RITUXIMAB
     Indication: Autoimmune haemolytic anaemia
     Route: 065
  2. RITUXIMAB [Suspect]
     Active Substance: RITUXIMAB
     Indication: B-cell lymphoma
  3. RITUXIMAB [Suspect]
     Active Substance: RITUXIMAB
     Indication: Immune thrombocytopenia

REACTIONS (13)
  - Myocardial infarction [Unknown]
  - Neutropenia [Unknown]
  - Encephalopathy [Unknown]
  - Infection [Fatal]
  - Pneumonia [Unknown]
  - Gastrointestinal infection [Unknown]
  - Skin infection [Unknown]
  - Neurological infection [Unknown]
  - Infection [Unknown]
  - Thrombosis [Unknown]
  - Hypersensitivity [Unknown]
  - Renal failure [Unknown]
  - Cardiac failure [Unknown]
